FAERS Safety Report 14017158 (Version 1)
Quarter: 2017Q3

REPORT INFORMATION
  Report Type: Spontaneous
  Country: SG (occurrence: SG)
  Receive Date: 20170927
  Receipt Date: 20170927
  Transmission Date: 20171128
  Serious: Yes (Hospitalization)
  Sender: FDA-Public Use
  Company Number: SG-MYLANLABS-2017M1059781

PATIENT
  Age: 32 Year
  Sex: Male

DRUGS (1)
  1. ESCITALOPRAM [Suspect]
     Active Substance: ESCITALOPRAM OXALATE
     Indication: DEPRESSION
     Dosage: EVERY NIGHT
     Route: 065

REACTIONS (4)
  - Hyperkalaemia [Unknown]
  - Rhabdomyolysis [Recovering/Resolving]
  - Muscle necrosis [Recovering/Resolving]
  - Blood creatinine increased [Recovering/Resolving]
